FAERS Safety Report 6190007-9 (Version None)
Quarter: 2009Q2

REPORT INFORMATION
  Report Type: 
  Country: None (occurrence: None)
  Receive Date: 20090514
  Receipt Date: 20090507
  Transmission Date: 20091009
  Serious: Yes (Other)
  Sender: FDA-Public Use
  Company Number: PHEH2009US04496

PATIENT
  Sex: Female

DRUGS (2)
  1. ZOMETA [Suspect]
     Indication: RESORPTION BONE INCREASED
     Dosage: UNK
  2. ZOMETA [Suspect]
     Indication: OSTEOPOROSIS

REACTIONS (3)
  - INJURY [None]
  - OSTEONECROSIS [None]
  - PAIN [None]
